FAERS Safety Report 4510858-3 (Version None)
Quarter: 2004Q4

REPORT INFORMATION
  Report Type: 
  Country: None (occurrence: None)
  Receive Date: 20041025
  Receipt Date: 20031223
  Transmission Date: 20050328
  Serious: Yes (Other)
  Sender: FDA-Public Use
  Company Number: NSADSS2003004815

PATIENT
  Age: 38 Year
  Sex: Female
  Weight: 92.0802 kg

DRUGS (6)
  1. REMICADE [Suspect]
     Indication: CROHN'S DISEASE
     Dosage: 500 MG, 1 IN 1 AS NECESSARY, INTRAVENOUS DRIP
     Route: 041
     Dates: start: 20020626, end: 20020626
  2. REMICADE [Suspect]
     Indication: CROHN'S DISEASE
     Dosage: 500 MG, 1 IN 1 AS NECESSARY, INTRAVENOUS DRIP
     Route: 041
     Dates: start: 20030423, end: 20030423
  3. PREDNISONE [Concomitant]
  4. ASACOL (MESALAZAINE) [Concomitant]
  5. IMODIUM [Concomitant]
  6. LORCET-HD [Concomitant]

REACTIONS (1)
  - RASH [None]
